FAERS Safety Report 4416689-7 (Version None)
Quarter: 2004Q3

REPORT INFORMATION
  Report Type: 
  Country: None (occurrence: None)
  Receive Date: 20040802
  Receipt Date: 20040720
  Transmission Date: 20050211
  Serious: Yes (Hospitalization)
  Sender: FDA-Public Use
  Company Number: 04P-163-0251474-00

PATIENT
  Age: 75 Year
  Sex: Female
  Weight: 58.9676 kg

DRUGS (18)
  1. HUMIRA [Suspect]
     Indication: RHEUMATOID ARTHRITIS
     Dosage: 40 MG, 1 IN 2 WK, SUBCUTANEOUS
     Route: 058
     Dates: start: 20040401, end: 20040101
  2. HUMIRA [Suspect]
     Indication: RHEUMATOID ARTHRITIS
     Dosage: 40 MG, 1 IN 2 WK, SUBCUTANEOUS
     Route: 058
     Dates: start: 20031217, end: 20040201
  3. CIPROFLOXACIN HCL [Suspect]
     Indication: URINARY TRACT INFECTION
     Dosage: PER ORAL
     Route: 048
     Dates: start: 20040601, end: 20040101
  4. PREDNISONE [Concomitant]
  5. CALCIUM + D [Concomitant]
  6. FOLIC ACID [Concomitant]
  7. OMEPRAZOLE [Concomitant]
  8. ATENOLOL [Concomitant]
  9. ASPIRIN [Concomitant]
  10. METHOTREXATE [Concomitant]
  11. FOLINIC ACID [Concomitant]
  12. ISONIAZID [Concomitant]
  13. CLOPIDOGREL BISULFATE [Concomitant]
  14. PYRIDOXINE HYDROCHLORIDE [Concomitant]
  15. MULTIVITAMIN [Concomitant]
  16. IRON [Concomitant]
  17. BIMATOPROST [Concomitant]
  18. .. [Concomitant]

REACTIONS (10)
  - ASTHENIA [None]
  - BLOOD PRESSURE DECREASED [None]
  - COLLAPSE OF LUNG [None]
  - FALL [None]
  - MYOCARDIAL INFARCTION [None]
  - RASH PRURITIC [None]
  - RIB FRACTURE [None]
  - SEPSIS [None]
  - SPINAL FRACTURE [None]
  - URINARY TRACT INFECTION [None]
